FAERS Safety Report 18012422 (Version 1)
Quarter: 2020Q3

REPORT INFORMATION
  Report Type: Spontaneous
  Country: US (occurrence: US)
  Receive Date: 20200713
  Receipt Date: 20200713
  Transmission Date: 20201103
  Serious: No
  Sender: FDA-Public Use
  Company Number: US-BAYER-2020-139897

PATIENT
  Sex: Female

DRUGS (4)
  1. MIRALAX [Suspect]
     Active Substance: POLYETHYLENE GLYCOL 3350
     Indication: COLONOSCOPY
     Dosage: 238G OR 255G IN 64OZ AND 32OZ GATORADE
     Route: 048
  2. LIALDA [Concomitant]
     Active Substance: MESALAMINE
  3. ELIQUIS [Concomitant]
     Active Substance: APIXABAN
  4. WELLBUTRIN [Concomitant]
     Active Substance: BUPROPION HYDROCHLORIDE

REACTIONS (2)
  - Off label use [Unknown]
  - Product use in unapproved indication [Unknown]
